FAERS Safety Report 7811915-6 (Version None)
Quarter: 2011Q4

REPORT INFORMATION
  Report Type: 
  Country: None (occurrence: None)
  Receive Date: 20111013
  Receipt Date: 20111011
  Transmission Date: 20120403
  Serious: Yes (Death)
  Sender: FDA-Public Use
  Company Number: PHHY2011EC90086

PATIENT
  Sex: Female

DRUGS (3)
  1. AMLODIPINE [Concomitant]
  2. NIMODIPINE [Concomitant]
  3. RASILEZ [Suspect]
     Indication: HYPERTENSION
     Dosage: 1 DF DAILY
     Dates: start: 20090402

REACTIONS (1)
  - RESPIRATORY ARREST [None]
